FAERS Safety Report 7783270-1 (Version None)
Quarter: 2011Q3

REPORT INFORMATION
  Report Type: 
  Country: None (occurrence: None)
  Receive Date: 20110926
  Receipt Date: 20110913
  Transmission Date: 20111222
  Serious: Yes (Hospitalization, Disabling)
  Sender: FDA-Public Use
  Company Number: OMPQ-PR-1109S-1018

PATIENT
  Sex: Female

DRUGS (2)
  1. OMNIPAQUE 70 [Suspect]
     Indication: PRODUCT USED FOR UNKNOWN INDICATION
     Dosage: 100 ML, SINGLE DOSE, INTRAVENOUS
     Route: 042
     Dates: start: 20110905, end: 20110905
  2. PHENOBARBITAL TAB [Concomitant]

REACTIONS (1)
  - STEVENS-JOHNSON SYNDROME [None]
